FAERS Safety Report 21249472 (Version 1)
Quarter: 2022Q3

REPORT INFORMATION
  Report Type: Report from Study
  Country: BR (occurrence: BR)
  Receive Date: 20220824
  Receipt Date: 20220824
  Transmission Date: 20221027
  Serious: Yes (Other)
  Sender: FDA-Public Use
  Company Number: BR-ABBVIE-22K-020-4514859-00

PATIENT
  Sex: Male
  Weight: 90 kg

DRUGS (1)
  1. SKYRIZI [Suspect]
     Active Substance: RISANKIZUMAB-RZAA
     Indication: Psoriasis
     Dosage: WEEK 0,4 AND EVERY 3 MONTHS
     Route: 058
     Dates: start: 20210103

REACTIONS (2)
  - Tuberculosis [Not Recovered/Not Resolved]
  - Liver disorder [Not Recovered/Not Resolved]
